FAERS Safety Report 6215299-9 (Version None)
Quarter: 2009Q2

REPORT INFORMATION
  Report Type: 
  Country: None (occurrence: None)
  Receive Date: 20090604
  Receipt Date: 20090526
  Transmission Date: 20091009
  Serious: Yes (Other)
  Sender: FDA-Public Use
  Company Number: PHHY2009AT20890

PATIENT
  Age: 81 Year
  Sex: Female

DRUGS (2)
  1. EXELON [Suspect]
     Dosage: 4.6 MG PATCH/ 24 H
     Route: 062
     Dates: start: 20080924, end: 20091020
  2. EXELON [Suspect]
     Dosage: 9.5 MG/ 24 H
     Route: 062
     Dates: start: 20081021, end: 20090301

REACTIONS (1)
  - ABNORMAL BEHAVIOUR [None]
